FAERS Safety Report 15213177 (Version 1)
Quarter: 2018Q3

REPORT INFORMATION
  Report Type: Spontaneous
  Country: US (occurrence: US)
  Receive Date: 20180730
  Receipt Date: 20180730
  Transmission Date: 20181010
  Serious: No
  Sender: FDA-Public Use
  Company Number: US-PFIZER INC-2018301813

PATIENT
  Age: 55 Year
  Sex: Female
  Weight: 76 kg

DRUGS (5)
  1. IBRANCE [Suspect]
     Active Substance: PALBOCICLIB
     Indication: INFLAMMATION
  2. LETROZOLE. [Suspect]
     Active Substance: LETROZOLE
     Indication: BREAST CANCER METASTATIC
     Dosage: 2.5 MG, DAILY
     Route: 048
     Dates: start: 2015, end: 201607
  3. IBRANCE [Suspect]
     Active Substance: PALBOCICLIB
     Indication: BREAST CANCER METASTATIC
     Dosage: 100 MG, CYCLIC (DAILY FOR 21 DAYS ON AND 7 DAYS OFF)
     Route: 048
     Dates: start: 2015
  4. LETROZOLE. [Suspect]
     Active Substance: LETROZOLE
     Indication: INFLAMMATION
  5. FASLODEX [Concomitant]
     Active Substance: FULVESTRANT
     Indication: ANTIOESTROGEN THERAPY
     Dosage: 2 DF, MONTHLY (TAKES 2 SHOTS MONTHLY)
     Dates: start: 201607

REACTIONS (4)
  - Weight increased [Unknown]
  - Neoplasm progression [Unknown]
  - Joint swelling [Unknown]
  - Product use in unapproved indication [Unknown]

NARRATIVE: CASE EVENT DATE: 2015
